FAERS Safety Report 24377901 (Version 1)
Quarter: 2024Q3

REPORT INFORMATION
  Report Type: Spontaneous
  Country: US (occurrence: None)
  Receive Date: 20240928
  Receipt Date: 20240928
  Transmission Date: 20241016
  Serious: No
  Sender: Public
  Company Number: None

PATIENT
  Sex: 0

DRUGS (1)
  1. TRULICITY [Suspect]
     Active Substance: DULAGLUTIDE
     Dosage: 0.75 ML WEEKLY SUACUTANEOUS
     Route: 058
     Dates: start: 20240920

REACTIONS (3)
  - Nausea [None]
  - Abdominal pain upper [None]
  - Headache [None]

NARRATIVE: CASE EVENT DATE: 20240920
